FAERS Safety Report 8435785 (Version 5)
Quarter: 2012Q4

REPORT INFORMATION
  Report Type: 
  Country: DE (occurrence: DE)
  Receive Date: 20120301
  Receipt Date: 20120925
  Transmission Date: 20130627
  Serious: No
  Sender: FDA-Public Use
  Company Number: PHHY2012DE016037

PATIENT
  Sex: Female
  Weight: 73 kg

DRUGS (2)
  1. FTY 720 [Suspect]
     Indication: MULTIPLE SCLEROSIS
     Dosage: 0.5 mg, QD
     Route: 048
     Dates: start: 20111121, end: 20111207
  2. CYMBALTA [Concomitant]
     Indication: DEPRESSION
     Dosage: 30 mg, UNK
     Route: 048

REACTIONS (5)
  - Arrhythmia [Recovered/Resolved]
  - Ventricular extrasystoles [Recovering/Resolving]
  - Palpitations [Not Recovered/Not Resolved]
  - Drug tolerance decreased [Unknown]
  - Liver function test abnormal [Not Recovered/Not Resolved]
